APPROVED DRUG PRODUCT: TOPICORT LP
Active Ingredient: DESOXIMETASONE
Strength: 0.05% **Federal Register determination that product was not discontinued or withdrawn for safety or effectiveness reasons**
Dosage Form/Route: CREAM;TOPICAL
Application: N018309 | Product #001
Applicant: TARO PHARMACEUTICAL INDUSTRIES LTD
Approved: Approved Prior to Jan 1, 1982 | RLD: Yes | RS: No | Type: DISCN